FAERS Safety Report 7709348-6 (Version None)
Quarter: 2011Q3

REPORT INFORMATION
  Report Type: 
  Country: None (occurrence: None)
  Receive Date: 20110825
  Receipt Date: 20110819
  Transmission Date: 20111222
  Serious: Yes (Disabling, Other)
  Sender: FDA-Public Use
  Company Number: GB-PFIZER INC-2011193363

PATIENT
  Age: 49 Year
  Sex: Male

DRUGS (15)
  1. ALLOPURINOL [Concomitant]
  2. ASCORBIC ACID [Concomitant]
  3. ATENOLOL [Concomitant]
  4. METRONIDAZOLE [Concomitant]
  5. SENNA [Concomitant]
  6. SIMVASTATIN [Concomitant]
  7. LISINOPRIL [Concomitant]
  8. OMEPRAZOLE [Concomitant]
  9. TRAMADOL HCL [Suspect]
     Indication: PAIN
     Dosage: 100 MG, AS NEEDED
     Route: 048
     Dates: start: 20110720, end: 20110804
  10. MOVIPREP [Concomitant]
  11. PARACETAMOL [Concomitant]
  12. VANCOMYCIN [Concomitant]
  13. LINEZOLID [Suspect]
     Indication: DEVICE RELATED INFECTION
     Dosage: 600 MG, 2X/DAY
     Route: 042
     Dates: start: 20110728, end: 20110805
  14. GENTAMICIN [Concomitant]
  15. ZINC SULFATE [Concomitant]

REACTIONS (8)
  - ANAEMIA [None]
  - PANCYTOPENIA [None]
  - ABNORMAL BEHAVIOUR [None]
  - PARANOIA [None]
  - PSYCHOTIC BEHAVIOUR [None]
  - AGGRESSION [None]
  - HALLUCINATIONS, MIXED [None]
  - THROMBOCYTOPENIA [None]
